FAERS Safety Report 7207449-2 (Version None)
Quarter: 2011Q1

REPORT INFORMATION
  Report Type: 
  Country: None (occurrence: None)
  Receive Date: 20110103
  Receipt Date: 20101220
  Transmission Date: 20110831
  Serious: Yes (Hospitalization, Other)
  Sender: FDA-Public Use
  Company Number: PHHY2010HR87014

PATIENT
  Age: 74 Year
  Sex: Male

DRUGS (18)
  1. AMOXICILLIN AND CLAVULANATE POTASSIUM [Suspect]
     Indication: PNEUMONIA
     Dosage: UNK
     Dates: start: 20101022
  2. AMIODARONE [Interacting]
     Dosage: 400 MG
  3. CORDARONE [Suspect]
     Dosage: 200 MG TWICE PER DAY
     Route: 048
  4. NOVOCEF [Suspect]
     Dosage: 250 MG TWICE PER DAT
     Route: 048
     Dates: start: 20101030, end: 20101108
  5. PHYSIOTENS [Concomitant]
     Indication: HYPERTENSION
     Dosage: 0.2 MG, 1 PER DAY
     Dates: start: 20080101
  6. NORVASC [Concomitant]
     Indication: HYPERTENSION
     Dosage: 10 MG, 1 PER DAY
     Dates: start: 20010101
  7. NOVOMIX [Concomitant]
     Indication: DIABETES MELLITUS
     Dosage: 15+10 IU PER DAY
     Route: 058
     Dates: start: 20101025
  8. ATACAND HCT [Concomitant]
     Dosage: 12.5 MG/16 MG, 1 PER DAY
     Dates: start: 20080101, end: 20101101
  9. AMIODARONE [Interacting]
     Indication: ATRIAL FIBRILLATION
     Dosage: UNK
     Dates: start: 20101025
  10. AZITHROMYCIN [Suspect]
     Indication: PNEUMONIA
     Dosage: UNK
     Dates: start: 20101022
  11. WARFARIN [Interacting]
     Indication: ATRIAL FIBRILLATION
     Dosage: UNK
     Dates: start: 20101025
  12. CONCOR [Concomitant]
     Indication: HYPERTENSION
     Dosage: 5 MG, 1 DF DAILY
     Route: 048
     Dates: start: 20010101
  13. FURSEMID [Concomitant]
     Indication: RENAL FAILURE CHRONIC
     Dosage: 40 MG, 1 PER DAY
     Route: 048
     Dates: start: 20070101, end: 20101101
  14. ALOPURINOL [Concomitant]
     Indication: GOUT
     Dosage: 100 MG, 1 PER DAY
     Route: 048
     Dates: start: 20080101
  15. MARTEFARIN [Suspect]
  16. CEFUROXIME [Interacting]
  17. ASPIRIN [Concomitant]
     Indication: ATRIAL FIBRILLATION
     Dosage: 100 MG, 1 PER 1 DAY
     Dates: start: 20050101, end: 20101101
  18. CLEXANE [Concomitant]
     Indication: ATRIAL FIBRILLATION
     Dosage: 0.4 ML, 1 PER DAY
     Route: 042
     Dates: start: 20101020, end: 20101108

REACTIONS (5)
  - LEUKOPENIA [None]
  - DRUG INTERACTION [None]
  - OLIGURIA [None]
  - BLOOD CREATININE INCREASED [None]
  - PROTHROMBIN TIME SHORTENED [None]
